APPROVED DRUG PRODUCT: PROPRANOLOL HYDROCHLORIDE INTENSOL
Active Ingredient: PROPRANOLOL HYDROCHLORIDE
Strength: 80MG/ML
Dosage Form/Route: CONCENTRATE;ORAL
Application: A071388 | Product #001
Applicant: ROXANE LABORATORIES INC
Approved: May 15, 1987 | RLD: No | RS: No | Type: DISCN